FAERS Safety Report 21170207 (Version 4)
Quarter: 2023Q2

REPORT INFORMATION
  Report Type: Other
  Country: US (occurrence: None)
  Receive Date: 20220804
  Receipt Date: 20230608
  Transmission Date: 20230721
  Serious: No
  Sender: FDA-Public Use
  Company Number: US-ROCHE-3150912

PATIENT
  Age: 48 Year
  Sex: Female
  Weight: 76.272 kg

DRUGS (13)
  1. OCREVUS [Suspect]
     Active Substance: OCRELIZUMAB
     Indication: Relapsing-remitting multiple sclerosis
     Dosage: INFUSE 300 MG DAY 1, 300 MG DAY, THEN 600 MG ONCE IN 6 MONTHS.
     Route: 042
  2. OCREVUS [Suspect]
     Active Substance: OCRELIZUMAB
     Route: 042
     Dates: start: 20200107
  3. OCREVUS [Suspect]
     Active Substance: OCRELIZUMAB
     Route: 042
  4. VITAMIN D3 [Concomitant]
     Active Substance: CHOLECALCIFEROL
  5. AMBIEN [Concomitant]
     Active Substance: ZOLPIDEM TARTRATE
  6. CITALOPRAM [Concomitant]
     Active Substance: CITALOPRAM HYDROBROMIDE
  7. TOPIRAMATE [Concomitant]
     Active Substance: TOPIRAMATE
  8. SUMATRIPTAN [Concomitant]
     Active Substance: SUMATRIPTAN
  9. OXYBUTYNIN [Concomitant]
     Active Substance: OXYBUTYNIN
  10. LANSOPRAZOLE [Concomitant]
     Active Substance: LANSOPRAZOLE
  11. GABAPENTIN [Concomitant]
     Active Substance: GABAPENTIN
  12. ASPIRIN [Concomitant]
     Active Substance: ASPIRIN
  13. EFFEXOR XR [Concomitant]
     Active Substance: VENLAFAXINE HYDROCHLORIDE

REACTIONS (8)
  - JC polyomavirus test positive [Unknown]
  - Migraine [Unknown]
  - Depression [Unknown]
  - Fatigue [Unknown]
  - Musculoskeletal chest pain [Unknown]
  - Vomiting [Unknown]
  - Dizziness [Unknown]
  - Speech disorder [Unknown]

NARRATIVE: CASE EVENT DATE: 20200107
